FAERS Safety Report 17295946 (Version 1)
Quarter: 2020Q1

REPORT INFORMATION
  Report Type: Spontaneous
  Country: US (occurrence: US)
  Receive Date: 20200121
  Receipt Date: 20200121
  Transmission Date: 20200409
  Serious: No
  Sender: FDA-Public Use
  Company Number: US-KADMON PHARMACEUTICALS, LLC-KAD-201903-01431

PATIENT

DRUGS (2)
  1. RIBAVIRIN. [Suspect]
     Active Substance: RIBAVIRIN
     Route: 048
  2. INTERFERON [Suspect]
     Active Substance: INTERFERON

REACTIONS (2)
  - Autoimmune disorder [Unknown]
  - Therapeutic product effect prolonged [Unknown]
